FAERS Safety Report 15155181 (Version 1)
Quarter: 2018Q3

REPORT INFORMATION
  Report Type: Spontaneous
  Country: US (occurrence: US)
  Receive Date: 20180717
  Receipt Date: 20180717
  Transmission Date: 20181010
  Serious: Yes (Hospitalization)
  Sender: FDA-Public Use
  Company Number: US-OTSUKA-2018_018390

PATIENT
  Age: 72 Year
  Sex: Female

DRUGS (1)
  1. REXULTI [Suspect]
     Active Substance: BREXPIPRAZOLE
     Indication: MAJOR DEPRESSION
     Dosage: 1 MG, UNK
     Route: 065

REACTIONS (3)
  - Tardive dyskinesia [Not Recovered/Not Resolved]
  - Akathisia [Not Recovered/Not Resolved]
  - Dyskinesia [Not Recovered/Not Resolved]
